FAERS Safety Report 14443021 (Version 2)
Quarter: 2019Q1

REPORT INFORMATION
  Report Type: Spontaneous
  Country: US (occurrence: US)
  Receive Date: 20180125
  Receipt Date: 20190204
  Transmission Date: 20190417
  Serious: Yes (Other)
  Sender: FDA-Public Use
  Company Number: US-ABBVIE-17K-163-1869900-00

PATIENT

DRUGS (1)
  1. HUMIRA [Suspect]
     Active Substance: ADALIMUMAB
     Indication: PRODUCT USED FOR UNKNOWN INDICATION
     Route: 058

REACTIONS (15)
  - Periarthritis [Unknown]
  - Joint range of motion decreased [Unknown]
  - Muscular weakness [Unknown]
  - Abnormal behaviour [Unknown]
  - Pain in extremity [Unknown]
  - Surgery [Unknown]
  - Musculoskeletal stiffness [Not Recovered/Not Resolved]
  - Musculoskeletal pain [Unknown]
  - Poor quality sleep [Unknown]
  - Tooth fracture [Unknown]
  - Loose tooth [Unknown]
  - Injection site pain [Unknown]
  - Drug hypersensitivity [Unknown]
  - Tooth pulp haemorrhage [Unknown]
  - Pain [Unknown]
